FAERS Safety Report 21711871 (Version 2)
Quarter: 2022Q4

REPORT INFORMATION
  Report Type: Spontaneous
  Country: FR (occurrence: FR)
  Receive Date: 20221212
  Receipt Date: 20221217
  Transmission Date: 20230112
  Serious: Yes (Life-Threatening, Other)
  Sender: FDA-Public Use
  Company Number: None

PATIENT
  Age: 78 Year
  Sex: Male
  Weight: 71 kg

DRUGS (6)
  1. CYCLOPHOSPHAMIDE [Interacting]
     Active Substance: CYCLOPHOSPHAMIDE
     Indication: B-cell lymphoma
     Dosage: 1350 MG, 1 TOTAL
     Route: 042
     Dates: start: 20221002, end: 20221002
  2. ETOPOSIDE [Interacting]
     Active Substance: ETOPOSIDE
     Indication: B-cell lymphoma
     Dosage: 100 MG, QD
     Route: 048
     Dates: start: 20221002, end: 20221003
  3. ETOPOSIDE [Suspect]
     Active Substance: ETOPOSIDE
     Indication: B-cell lymphoma
     Dosage: 50 MG, 1 TOTAL
     Route: 042
     Dates: start: 20221002, end: 20221002
  4. VINCRISTINE SULFATE [Interacting]
     Active Substance: VINCRISTINE SULFATE
     Indication: B-cell lymphoma
     Dosage: 2 MG, 1 TOTAL
     Route: 042
     Dates: start: 20221002, end: 20221002
  5. RITUXIMAB [Interacting]
     Active Substance: RITUXIMAB
     Indication: B-cell lymphoma
     Dosage: (MAMMAL/HAMSTER/CHO CELLS) 1400 MG, 1 TOTAL
     Route: 058
     Dates: start: 20221002, end: 20221002
  6. METHYLPREDNISOLONE ACETATE [Interacting]
     Active Substance: METHYLPREDNISOLONE ACETATE
     Indication: Product used for unknown indication
     Dosage: 100 MG, QD
     Route: 048
     Dates: start: 20221002, end: 20221007

REACTIONS (2)
  - Drug interaction [Recovering/Resolving]
  - Sepsis [Recovering/Resolving]

NARRATIVE: CASE EVENT DATE: 20221017
